FAERS Safety Report 23180471 (Version 6)
Quarter: 2024Q1

REPORT INFORMATION
  Report Type: Report from Study
  Country: US (occurrence: US)
  Receive Date: 20231114
  Receipt Date: 20240119
  Transmission Date: 20240410
  Serious: Yes (Hospitalization, Other)
  Sender: FDA-Public Use
  Company Number: US-UCBSA-2023053305

PATIENT
  Age: 6 Year
  Sex: Male
  Weight: 29 kg

DRUGS (12)
  1. FINTEPLA [Suspect]
     Active Substance: FENFLURAMINE
     Indication: Severe myoclonic epilepsy of infancy
     Dosage: 1.3 MILLILITER, 2X/DAY (BID)
     Route: 048
     Dates: start: 20210907
  2. FINTEPLA [Suspect]
     Active Substance: FENFLURAMINE
     Dosage: 0.2 MG/KG/DAY TOTAL 5.72 MG/DAY
  3. FINTEPLA [Suspect]
     Active Substance: FENFLURAMINE
     Dosage: 1.3 MILLILITER, 2X/DAY (BID)
  4. FINTEPLA [Suspect]
     Active Substance: FENFLURAMINE
     Dosage: 2.6 MILLILITER (5.72 MILLIGRAM PER DAY)
     Dates: start: 20230309
  5. CANNABIDIOL [Concomitant]
     Active Substance: CANNABIDIOL
     Indication: Product used for unknown indication
     Dosage: UNK
  6. CLOBAZAM [Concomitant]
     Active Substance: CLOBAZAM
     Indication: Product used for unknown indication
     Dosage: UNK
  7. DEPAKOTE [Concomitant]
     Active Substance: DIVALPROEX SODIUM
     Indication: Product used for unknown indication
     Dosage: UNK
  8. DIAZEPAM [Concomitant]
     Active Substance: DIAZEPAM
     Indication: Product used for unknown indication
     Dosage: UNK
  9. DIVALPROEX SODIUM ER [Concomitant]
     Active Substance: DIVALPROEX SODIUM
     Indication: Product used for unknown indication
     Dosage: UNK
  10. FLINTSTONES MULTIPLE VITAMINS [CYANOCOBALAMIN;ERGOCALCIFEROL;FOLIC ACI [Concomitant]
     Indication: Product used for unknown indication
     Dosage: UNK
  11. MELATONIN [Concomitant]
     Active Substance: MELATONIN
     Indication: Product used for unknown indication
     Dosage: UNK
  12. VITAMIN D3 [Concomitant]
     Active Substance: CHOLECALCIFEROL
     Indication: Product used for unknown indication
     Dosage: UNK

REACTIONS (14)
  - Pneumonia [Recovered/Resolved]
  - Influenza [Recovered/Resolved]
  - Dehydration [Recovered/Resolved]
  - Aortic valve incompetence [Not Recovered/Not Resolved]
  - Aortic valve thickening [Unknown]
  - Perinatal depression [Unknown]
  - Seizure [Unknown]
  - Tricuspid valve incompetence [Unknown]
  - Pulmonary valve incompetence [Unknown]
  - Mitral valve incompetence [Unknown]
  - Abdominal pain [Unknown]
  - Chest pain [Unknown]
  - Expired product administered [Unknown]
  - Drug ineffective [Unknown]

NARRATIVE: CASE EVENT DATE: 20210907
